FAERS Safety Report 18517114 (Version 2)
Quarter: 2020Q4

REPORT INFORMATION
  Report Type: Spontaneous
  Country: DE (occurrence: DE)
  Receive Date: 20201118
  Receipt Date: 20201124
  Transmission Date: 20210114
  Serious: Yes (Hospitalization, Other)
  Sender: FDA-Public Use
  Company Number: DE-BRISTOL-MYERS SQUIBB COMPANY-BMS-2020-091560

PATIENT
  Age: 92 Year
  Sex: Male

DRUGS (3)
  1. ELIQUIS [Suspect]
     Active Substance: APIXABAN
     Indication: CEREBROVASCULAR ACCIDENT PROPHYLAXIS
     Dosage: 5 MILLIGRAM, BID
     Route: 065
     Dates: start: 20191030, end: 20200609
  2. ELIQUIS [Suspect]
     Active Substance: APIXABAN
     Dosage: 1.25 MG, HALF A TABLET IN THE MORNING AND HALF A TABLET IN THE EVENING
     Route: 065
  3. ELIQUIS [Suspect]
     Active Substance: APIXABAN
     Dosage: 2.5 MILLIGRAM, BID
     Route: 065
     Dates: start: 20200609

REACTIONS (3)
  - General physical health deterioration [Unknown]
  - Peripheral artery occlusion [Not Recovered/Not Resolved]
  - Off label use [Unknown]
